FAERS Safety Report 21944976 (Version 2)
Quarter: 2023Q1

REPORT INFORMATION
  Report Type: Report from Study
  Country: IT (occurrence: IT)
  Receive Date: 20230202
  Receipt Date: 20230214
  Transmission Date: 20230418
  Serious: Yes (Hospitalization, Other)
  Sender: FDA-Public Use
  Company Number: None

PATIENT
  Age: 85 Year
  Sex: Female

DRUGS (1)
  1. FLUVASTATIN [Suspect]
     Active Substance: FLUVASTATIN SODIUM
     Indication: Product used for unknown indication
     Dosage: 80 MILLIGRAM, Q8H (3 TABLETS OF 80MG BY MISTAKE)
     Route: 048
     Dates: start: 20221212, end: 20221222

REACTIONS (5)
  - Acute kidney injury [Recovering/Resolving]
  - Rhabdomyolysis [Not Recovered/Not Resolved]
  - Overdose [Not Recovered/Not Resolved]
  - Medication error [Recovering/Resolving]
  - Pain in extremity [Recovering/Resolving]

NARRATIVE: CASE EVENT DATE: 20221222
